FAERS Safety Report 7473272-7 (Version None)
Quarter: 2011Q1

REPORT INFORMATION
  Report Type: 
  Country: None (occurrence: None)
  Receive Date: 20110302
  Receipt Date: 20101221
  Transmission Date: 20110831
  Serious: Yes (Hospitalization)
  Sender: FDA-Public Use
  Company Number: 163-21880-10112367

PATIENT
  Age: 67 Year
  Sex: Male
  Weight: 82.0103 kg

DRUGS (19)
  1. MYCELEX [Concomitant]
  2. MIRALAX [Concomitant]
  3. PROPRANOLOL [Concomitant]
  4. NARCOTICS (ALL OTHER THERAPEUTIC PRODUCTS) [Concomitant]
  5. LEVITRA [Concomitant]
  6. VALTREX [Concomitant]
  7. LEVOFLOXACIN [Concomitant]
  8. PRILOSEC [Concomitant]
  9. SEROQUEL [Concomitant]
  10. PACKED RED BLOOD CELLS (BLOOD AND RELATED PRODUCTS) [Concomitant]
  11. FENTANYL [Concomitant]
  12. NORVASC [Concomitant]
  13. REVLIMID [Suspect]
     Indication: MULTIPLE MYELOMA
     Dosage: 7.5 MG, 1 IN 2 D, PO
     Route: 048
     Dates: start: 20101108, end: 20101110
  14. VELCADE [Concomitant]
  15. PERCOCET [Concomitant]
  16. DEXAMETHASONE [Concomitant]
  17. AREDIA [Concomitant]
  18. LASIX [Concomitant]
  19. TUMS (CALCIUM CARBONATE) [Concomitant]

REACTIONS (6)
  - MENTAL STATUS CHANGES [None]
  - COAGULOPATHY [None]
  - RASH [None]
  - RENAL FAILURE [None]
  - PNEUMONIA [None]
  - CARDIAC FAILURE [None]
